FAERS Safety Report 26012854 (Version 1)
Quarter: 2025Q4

REPORT INFORMATION
  Report Type: Report from Study
  Country: US (occurrence: US)
  Receive Date: 20251107
  Receipt Date: 20251107
  Transmission Date: 20260117
  Serious: Yes (Other)
  Sender: ABBVIE
  Company Number: US-ABBVIE-6532624

PATIENT
  Age: 62 Year
  Sex: Female

DRUGS (9)
  1. SKYRIZI [Suspect]
     Active Substance: RISANKIZUMAB-RZAA
     Indication: Crohn^s disease
     Dosage: STRENGTH-360MG
     Route: 058
     Dates: start: 202505
  2. POTASSIUM [Concomitant]
     Active Substance: POTASSIUM
     Indication: Blood potassium decreased
  3. TOPIRAMATE [Concomitant]
     Active Substance: TOPIRAMATE
     Indication: Migraine
  4. toprazol [Concomitant]
     Indication: Dyspepsia
  5. CYANOCOBALAMIN [Concomitant]
     Active Substance: CYANOCOBALAMIN
     Indication: Vitamin B12 decreased
  6. Valsiklaver [Concomitant]
     Indication: Herpes virus infection
  7. atoriastatin [Concomitant]
     Indication: Blood cholesterol
  8. MIRTAZAPINE [Concomitant]
     Active Substance: MIRTAZAPINE
     Indication: Crohn^s disease
  9. Lorasapam [Concomitant]
     Indication: Anxiety

REACTIONS (4)
  - Neoplasm malignant [Unknown]
  - Pain [Unknown]
  - Hordeolum [Unknown]
  - Gastrointestinal disorder [Unknown]

NARRATIVE: CASE EVENT DATE: 20250101
